FAERS Safety Report 11208294 (Version 1)
Quarter: 2015Q2

REPORT INFORMATION
  Report Type: Spontaneous
  Country: US (occurrence: US)
  Receive Date: 20150622
  Receipt Date: 20150622
  Transmission Date: 20150821
  Serious: No
  Sender: FDA-Public Use
  Company Number: US-TAKEDA-2015TUS004468

PATIENT
  Sex: Female
  Weight: 128.35 kg

DRUGS (5)
  1. CONTRAVE [Suspect]
     Active Substance: BUPROPION HYDROCHLORIDE\NALTREXONE HYDROCHLORIDE
     Dosage: TWO TABLETS IN MORNING AND ONE TABLET DAILY IN EVENING
     Route: 048
     Dates: start: 20150328, end: 20150403
  2. ATENOLOL. [Concomitant]
     Active Substance: ATENOLOL
     Indication: HYPERTENSION
     Dosage: UNK
     Route: 048
  3. CONTRAVE [Suspect]
     Active Substance: BUPROPION HYDROCHLORIDE\NALTREXONE HYDROCHLORIDE
     Dosage: ONE TABLET DAILY IN MORNING AND ONE TABLET DAILY IN EVENING
     Route: 048
     Dates: start: 20150321, end: 20150327
  4. CONTRAVE [Suspect]
     Active Substance: BUPROPION HYDROCHLORIDE\NALTREXONE HYDROCHLORIDE
     Dosage: TWO TABLET IN MORNING AND TWO TABLETS IN EVENING
     Route: 048
     Dates: start: 20150404
  5. CONTRAVE [Suspect]
     Active Substance: BUPROPION HYDROCHLORIDE\NALTREXONE HYDROCHLORIDE
     Indication: OVERWEIGHT
     Dosage: ONE TABLET DAILY IN MORNING
     Route: 048
     Dates: start: 20150314, end: 20150320

REACTIONS (2)
  - Drug ineffective [Not Recovered/Not Resolved]
  - Hyperphagia [Not Recovered/Not Resolved]
